FAERS Safety Report 23692511 (Version 1)
Quarter: 2024Q2

REPORT INFORMATION
  Report Type: Spontaneous
  Country: GB (occurrence: GB)
  Receive Date: 20240401
  Receipt Date: 20240401
  Transmission Date: 20240716
  Serious: Yes (Hospitalization, Other)
  Sender: FDA-Public Use
  Company Number: GB-CELLTRION INC.-2023GB025596

PATIENT

DRUGS (3)
  1. INFLIXIMAB [Suspect]
     Active Substance: INFLIXIMAB
     Indication: Crohn^s disease
     Dosage: 120MG PRE FILLED PEN
     Route: 058
     Dates: start: 202306
  2. INFLIXIMAB [Suspect]
     Active Substance: INFLIXIMAB
     Dosage: 120MG PRE FILLED PEN
     Route: 058
     Dates: start: 202306
  3. INFLIXIMAB [Suspect]
     Active Substance: INFLIXIMAB
     Indication: Crohn^s disease
     Dosage: 200 MG
     Route: 065
     Dates: start: 202305

REACTIONS (5)
  - Colitis ulcerative [Unknown]
  - Cholelithiasis [Recovered/Resolved]
  - Treatment delayed [Unknown]
  - Intentional dose omission [Unknown]
  - Exposure via skin contact [Unknown]
